FAERS Safety Report 25948309 (Version 1)
Quarter: 2025Q4

REPORT INFORMATION
  Report Type: Spontaneous
  Country: US (occurrence: US)
  Receive Date: 20251022
  Receipt Date: 20251022
  Transmission Date: 20260117
  Serious: Yes (Other)
  Sender: PFIZER
  Company Number: US-PFIZER INC-PV202500124248

PATIENT
  Age: 72 Year
  Sex: Male

DRUGS (1)
  1. RIFABUTIN [Suspect]
     Active Substance: RIFABUTIN
     Dosage: UNK
     Dates: start: 202505

REACTIONS (5)
  - Leukopenia [Unknown]
  - Thrombocytopenia [Unknown]
  - Therapeutic product effect incomplete [Unknown]
  - Atypical mycobacterium test positive [Unknown]
  - Pulmonary mass [Unknown]

NARRATIVE: CASE EVENT DATE: 20250101
